FAERS Safety Report 5170799-8 (Version None)
Quarter: 2006Q4

REPORT INFORMATION
  Report Type: 
  Country: None (occurrence: None)
  Receive Date: 20061205
  Receipt Date: 20061205
  Transmission Date: 20070319
  Serious: Yes (Death)
  Sender: FDA-Public Use
  Company Number: None

PATIENT
  Age: 83 Year
  Sex: Female

DRUGS (2)
  1. AVASTIN [Suspect]
     Indication: IRIS NEOVASCULARISATION
     Dosage: 0.10 CC 6 WKS INTRAOCULAR
     Route: 031
     Dates: start: 20060619
  2. AVASTIN [Suspect]
     Indication: IRIS NEOVASCULARISATION
     Dosage: 0.10 CC 6 WKS INTRAOCULAR
     Route: 031
     Dates: start: 20061030

REACTIONS (1)
  - MYOCARDIAL INFARCTION [None]
